FAERS Safety Report 12682874 (Version 1)
Quarter: 2016Q3

REPORT INFORMATION
  Report Type: Spontaneous
  Country: US (occurrence: None)
  Receive Date: 20160824
  Receipt Date: 20160824
  Transmission Date: 20161109
  Serious: Yes (Death)
  Sender: FDA-Public Use
  Company Number: None

PATIENT
  Age: 75 Year
  Sex: Male

DRUGS (20)
  1. LETAIRIS [Suspect]
     Active Substance: AMBRISENTAN
     Indication: PULMONARY ARTERIAL HYPERTENSION
     Route: 048
     Dates: start: 201408, end: 201607
  2. SILDENAFIL. [Concomitant]
     Active Substance: SILDENAFIL
  3. SENNA [Concomitant]
     Active Substance: SENNA LEAF\SENNOSIDES\SENNOSIDES A AND B
  4. ATROPINE. [Concomitant]
     Active Substance: ATROPINE
  5. FUROSEMIDE. [Concomitant]
     Active Substance: FUROSEMIDE
  6. QUESTRAN [Concomitant]
     Active Substance: CHOLESTYRAMINE
  7. FERROUS GLUCONATE [Concomitant]
     Active Substance: FERROUS GLUCONATE
  8. DULCOLAX NOS [Concomitant]
     Active Substance: BISACODYL OR DOCUSATE SODIUM
  9. METOPROLOL. [Concomitant]
     Active Substance: METOPROLOL
  10. ZOLOFT [Concomitant]
     Active Substance: SERTRALINE HYDROCHLORIDE
  11. ZOFRAN [Concomitant]
     Active Substance: ONDANSETRON HYDROCHLORIDE
  12. K-TAB [Concomitant]
     Active Substance: POTASSIUM CHLORIDE
  13. OMEPRAZOLE. [Concomitant]
     Active Substance: OMEPRAZOLE
  14. TYLENOL [Concomitant]
     Active Substance: ACETAMINOPHEN
  15. ATIVAN [Concomitant]
     Active Substance: LORAZEPAM
  16. ALBUTEROL. [Concomitant]
     Active Substance: ALBUTEROL
  17. LIPITOR [Concomitant]
     Active Substance: ATORVASTATIN CALCIUM
  18. NORCO [Concomitant]
     Active Substance: ACETAMINOPHEN\HYDROCODONE BITARTRATE
  19. ROXANOL [Concomitant]
     Active Substance: MORPHINE SULFATE
  20. IPRATROPIUM [Concomitant]
     Active Substance: IPRATROPIUM

REACTIONS (6)
  - Right ventricular failure [None]
  - Renal disorder [None]
  - Oedema peripheral [None]
  - Asthenia [None]
  - Scrotal oedema [None]
  - Hepatic function abnormal [None]

NARRATIVE: CASE EVENT DATE: 20160728
